FAERS Safety Report 15572336 (Version 1)
Quarter: 2018Q4

REPORT INFORMATION
  Report Type: Spontaneous
  Country: FR (occurrence: FR)
  Receive Date: 20181031
  Receipt Date: 20181031
  Transmission Date: 20190205
  Serious: Yes (Other)
  Sender: FDA-Public Use
  Company Number: FR-MYLANLABS-2018M1081387

PATIENT
  Age: 65 Year
  Sex: Male
  Weight: 81 kg

DRUGS (2)
  1. NEORAL [Suspect]
     Active Substance: CYCLOSPORINE
     Indication: NEUTROPENIA
     Dosage: 300 MG, QD
     Route: 048
     Dates: start: 20180515, end: 20180520
  2. ETOPOSIDE MYLAN [Suspect]
     Active Substance: ETOPOSIDE
     Indication: HAIRY CELL LEUKAEMIA
     Dosage: 200 MG, CYCLE
     Route: 042
     Dates: start: 20180514, end: 20180514

REACTIONS (1)
  - Posterior reversible encephalopathy syndrome [Recovering/Resolving]

NARRATIVE: CASE EVENT DATE: 20180520
